FAERS Safety Report 5269871-3 (Version None)
Quarter: 2007Q1

REPORT INFORMATION
  Report Type: 
  Country: None (occurrence: None)
  Receive Date: 20070320
  Receipt Date: 20070313
  Transmission Date: 20070707
  Serious: Yes (Hospitalization)
  Sender: FDA-Public Use
  Company Number: IS-GLAXOSMITHKLINE-B0460321A

PATIENT
  Age: 70 Year
  Sex: Female
  Weight: 78 kg

DRUGS (11)
  1. LAPATINIB [Suspect]
     Dosage: 1250MG PER DAY
     Route: 048
     Dates: start: 20070202
  2. CAPECITABINE [Suspect]
     Dosage: 1800MG TWICE PER DAY
     Route: 048
     Dates: start: 20070202
  3. LOMAX [Suspect]
     Indication: GASTRIC ULCER
     Dosage: 20MG PER DAY
     Route: 048
     Dates: start: 20060801
  4. FURIX [Suspect]
     Indication: HYPERTENSION
     Dosage: 40MG PER DAY
     Route: 048
  5. CENTYL [Suspect]
  6. KALIUM [Suspect]
  7. KALEORID [Suspect]
  8. ALDACTONE [Suspect]
     Indication: HYPERTENSION
     Dosage: 25MG PER DAY
     Route: 048
  9. KININ [Suspect]
  10. LYRICA [Suspect]
  11. FERROUS SULFATE TAB [Suspect]

REACTIONS (6)
  - ANOREXIA [None]
  - DIARRHOEA [None]
  - FATIGUE [None]
  - HAEMORRHAGE [None]
  - HYPONATRAEMIA [None]
  - URINARY TRACT INFECTION [None]
